FAERS Safety Report 9984405 (Version 1)
Quarter: 2014Q1

REPORT INFORMATION
  Report Type: Report from Study
  Country: US (occurrence: US)
  Receive Date: 20140307
  Receipt Date: 20140307
  Transmission Date: 20141002
  Serious: No
  Sender: FDA-Public Use
  Company Number: US-ABBVIE-13P-163-1183621-00

PATIENT
  Age: 63 Year
  Sex: Female

DRUGS (9)
  1. HUMIRA [Suspect]
     Indication: PSORIASIS
     Dosage: TWO 40MG PENS
     Dates: start: 20131213
  2. SULFASALAZINE [Concomitant]
     Indication: PSORIATIC ARTHROPATHY
     Dates: start: 20131209
  3. SULFASALAZINE [Concomitant]
     Indication: RHEUMATOID ARTHRITIS
  4. IBUPROFEN [Concomitant]
     Indication: ARTHRALGIA
  5. HYDROCODONE [Concomitant]
     Indication: ARTHRALGIA
  6. ACYCLOVIR [Concomitant]
     Indication: HERPES ZOSTER
  7. ACYCLOVIR [Concomitant]
     Indication: ORAL HERPES
  8. ACYCLOVIR [Concomitant]
     Indication: APHTHOUS STOMATITIS
  9. MAG-OXIDE [Concomitant]
     Indication: UNEVALUABLE INVESTIGATION

REACTIONS (4)
  - Joint stiffness [Not Recovered/Not Resolved]
  - Arthralgia [Not Recovered/Not Resolved]
  - Device malfunction [Unknown]
  - Incorrect dose administered [Unknown]
